FAERS Safety Report 7483862-3 (Version None)
Quarter: 2011Q2

REPORT INFORMATION
  Report Type: 
  Country: None (occurrence: None)
  Receive Date: 20110517
  Receipt Date: 20110428
  Transmission Date: 20111010
  Serious: No
  Sender: FDA-Public Use
  Company Number: US-B.I. PHARMACEUTICALS,INC./RIDGEFIELD-2011-BP-03125BP

PATIENT
  Sex: Male

DRUGS (3)
  1. PRADAXA [Suspect]
     Indication: CEREBROVASCULAR ACCIDENT PROPHYLAXIS
     Dosage: 300 MG
     Route: 048
     Dates: start: 20110114
  2. ASPIRIN [Concomitant]
     Indication: PROPHYLAXIS
     Route: 048
  3. PRADAXA [Suspect]
     Indication: TRANSIENT ISCHAEMIC ATTACK

REACTIONS (6)
  - ASTHENIA [None]
  - RESTLESS LEGS SYNDROME [None]
  - POLLAKIURIA [None]
  - NOCTURIA [None]
  - WEIGHT DECREASED [None]
  - DECREASED APPETITE [None]
